FAERS Safety Report 8523339-7 (Version None)
Quarter: 2012Q3

REPORT INFORMATION
  Report Type: 
  Country: None (occurrence: None)
  Receive Date: 20120720
  Receipt Date: 20120709
  Transmission Date: 20120928
  Serious: Yes (Disabling)
  Sender: FDA-Public Use
  Company Number: GB-ACCORD-014079

PATIENT
  Age: 30 Year
  Sex: Female
  Weight: 72 kg

DRUGS (2)
  1. ANASTROZOLE [Suspect]
     Dates: start: 20080101
  2. CHEMOTHERAPEUTICS NOS [Concomitant]

REACTIONS (2)
  - ARTHRALGIA [None]
  - OSTEOPENIA [None]
